FAERS Safety Report 7517020-0 (Version None)
Quarter: 2011Q2

REPORT INFORMATION
  Report Type: 
  Country: None (occurrence: None)
  Receive Date: 20110502
  Receipt Date: 20110325
  Transmission Date: 20111010
  Serious: Yes (Other)
  Sender: FDA-Public Use
  Company Number: AMAG201100101

PATIENT
  Sex: Male

DRUGS (1)
  1. FERAHEME [Suspect]
     Dosage: 510 MG, SINGLE, INTRAVENOUS
     Route: 042
     Dates: start: 20110301, end: 20110301

REACTIONS (1)
  - LOSS OF CONSCIOUSNESS [None]
